FAERS Safety Report 9070654 (Version 1)
Quarter: 2013Q1

REPORT INFORMATION
  Report Type: Spontaneous
  Country: US (occurrence: US)
  Receive Date: 20130206
  Receipt Date: 20130206
  Transmission Date: 20140127
  Serious: No
  Sender: FDA-Public Use
  Company Number: US-ALLERGAN-1202666US

PATIENT
  Sex: Male

DRUGS (1)
  1. RESTASIS? [Suspect]
     Indication: DRY EYE
     Dosage: 2 GTT, UNK
     Route: 047
     Dates: start: 201111

REACTIONS (3)
  - Visual acuity reduced [Not Recovered/Not Resolved]
  - Wrong technique in drug usage process [Unknown]
  - Vision blurred [Not Recovered/Not Resolved]
